FAERS Safety Report 5230482-7 (Version None)
Quarter: 2007Q1

REPORT INFORMATION
  Report Type: 
  Country: None (occurrence: None)
  Receive Date: 20070206
  Receipt Date: 20070124
  Transmission Date: 20070707
  Serious: Yes (Disabling)
  Sender: FDA-Public Use
  Company Number: PHFR2006GB02490

PATIENT
  Sex: Female

DRUGS (6)
  1. AREDIA [Suspect]
     Indication: BLOOD CALCIUM INCREASED
     Dosage: 90MG
     Route: 065
     Dates: start: 20060705
  2. AREDIA [Suspect]
     Dosage: 90MG
     Route: 065
     Dates: start: 20060725
  3. AREDIA [Suspect]
     Dosage: 30MG
     Route: 065
     Dates: start: 20060802
  4. ADCAL [Concomitant]
     Indication: OSTEOPOROSIS
     Dosage: UNK, QD
     Route: 048
  5. CEPHALEXIN [Concomitant]
     Dosage: 500 MG, QW
  6. DISTALGESIC ^DISTA^ [Concomitant]
     Indication: BACK PAIN
     Dosage: QD
     Route: 048

REACTIONS (2)
  - BLOOD CALCIUM INCREASED [None]
  - DRUG INEFFECTIVE [None]
